FAERS Safety Report 6458709-4 (Version None)
Quarter: 2009Q4

REPORT INFORMATION
  Report Type: 
  Country: None (occurrence: None)
  Receive Date: 20091127
  Receipt Date: 20091118
  Transmission Date: 20100525
  Serious: Yes (Other)
  Sender: FDA-Public Use
  Company Number: HU-ROCHE-666512

PATIENT
  Sex: Female
  Weight: 78 kg

DRUGS (2)
  1. PEG-INTERFERON ALFA 2A (RO 25-8310) [Suspect]
     Route: 065
     Dates: start: 20090114, end: 20090210
  2. RIBAVIRIN [Concomitant]
     Dosage: TOTAL DAILY DOSE/ UNIT: 1000.
     Dates: start: 20081119, end: 20090210

REACTIONS (1)
  - PERICARDITIS [None]
